FAERS Safety Report 22283015 (Version 1)
Quarter: 2023Q2

REPORT INFORMATION
  Report Type: Spontaneous
  Country: CN (occurrence: CN)
  Receive Date: 20230504
  Receipt Date: 20230504
  Transmission Date: 20230722
  Serious: Yes (Other)
  Sender: FDA-Public Use
  Company Number: CN-STERISCIENCE B.V.-2023-ST-001259

PATIENT
  Sex: Male

DRUGS (10)
  1. MIDAZOLAM [Suspect]
     Active Substance: MIDAZOLAM
     Indication: Product used for unknown indication
     Dosage: THE PATIENT^S MOTHER^S DOSE WAS 5 MILLIGRAM
     Route: 064
  2. PENEQUININE [Suspect]
     Active Substance: PENEQUININE
     Indication: Product used for unknown indication
     Dosage: THE PATIENT^S MOTHER^S DOSE WAS 1 MILLIGRAM
     Route: 064
  3. SUFENTANIL [Suspect]
     Active Substance: SUFENTANIL
     Indication: Product used for unknown indication
     Dosage: THE PATIENT^S MOTHER^S DOSE WAS 20 UG
     Route: 064
  4. PROPOFOL [Suspect]
     Active Substance: PROPOFOL
     Indication: Product used for unknown indication
     Dosage: THE PATIENT^S MOTHER^S DOSE WAS 100 MG
     Route: 064
  5. PROPOFOL [Suspect]
     Active Substance: PROPOFOL
     Dosage: THE PATIENT^S MOTHER^S DOSE WAS 6 MG/KG, INFUSION
     Route: 064
  6. CISATRACURIUM [Suspect]
     Active Substance: CISATRACURIUM
     Indication: Product used for unknown indication
     Dosage: THE PATIENT^S MOTHER^S DOSE WAS 12 MG
     Route: 064
  7. REMIFENTANIL [Suspect]
     Active Substance: REMIFENTANIL
     Indication: Product used for unknown indication
     Dosage: THE PATIENT^S MOTHER^S DOSE WAS 0.15 UG/KG
     Route: 064
  8. LACTATED RINGERS SOLUTION [Suspect]
     Active Substance: CALCIUM CHLORIDE\POTASSIUM CHLORIDE\SODIUM CHLORIDE\SODIUM LACTATE
     Indication: Product used for unknown indication
     Dosage: THE PATIENT^S MOTHER^S DOSE WAS 2500 ML,INFUSION
     Route: 064
  9. HETASTARCH [Suspect]
     Active Substance: HETASTARCH
     Indication: Product used for unknown indication
     Dosage: THE PATIENT^S MOTHER^S DOSE WAS 500 ML,INFUSION
     Route: 064
  10. MANNITOL [Suspect]
     Active Substance: MANNITOL
     Indication: Product used for unknown indication
     Dosage: THE PATIENT^S MOTHER^S DOSE WAS 250 ML
     Route: 064

REACTIONS (2)
  - Premature baby [Unknown]
  - Foetal exposure during pregnancy [Unknown]
